FAERS Safety Report 25473139 (Version 1)
Quarter: 2025Q2

REPORT INFORMATION
  Report Type: Report from Study
  Country: GB (occurrence: GB)
  Receive Date: 20250624
  Receipt Date: 20250624
  Transmission Date: 20250717
  Serious: Yes (Death, Other)
  Sender: IPSEN BIOPHARMACEUTICALS, INC.
  Company Number: GB-IPSEN Group, Research and Development-2025-14332

PATIENT

DRUGS (2)
  1. ABOBOTULINUMTOXINA [Suspect]
     Active Substance: ABOBOTULINUMTOXINA
     Indication: Muscle spasticity
  2. ABOBOTULINUMTOXINA [Suspect]
     Active Substance: ABOBOTULINUMTOXINA
     Indication: Muscle spasticity

REACTIONS (2)
  - Death [Fatal]
  - Adverse event [Unknown]
